FAERS Safety Report 13603201 (Version 10)
Quarter: 2020Q1

REPORT INFORMATION
  Report Type: Report from Study
  Country: US (occurrence: US)
  Receive Date: 20170601
  Receipt Date: 20200326
  Transmission Date: 20200409
  Serious: Yes (Death, Hospitalization)
  Sender: FDA-Public Use
  Company Number: US-ACTELION-A-US2017-153297

PATIENT
  Age: 61 Year
  Sex: Female
  Weight: 38.55 kg

DRUGS (6)
  1. OPSUMIT [Suspect]
     Active Substance: MACITENTAN
     Indication: PULMONARY ARTERIAL HYPERTENSION
     Dosage: 10 MG, QD
     Route: 048
     Dates: end: 20200209
  2. VELETRI [Suspect]
     Active Substance: EPOPROSTENOL
     Dosage: 30.41 NG/KG, PER MIN
     Route: 042
     Dates: end: 20200130
  3. ADCIRCA [Concomitant]
     Active Substance: TADALAFIL
  4. DILTIAZEM. [Concomitant]
     Active Substance: DILTIAZEM
  5. VELETRI [Suspect]
     Active Substance: EPOPROSTENOL
     Dosage: 64 ML/24 HRS
     Route: 042
  6. VELETRI [Suspect]
     Active Substance: EPOPROSTENOL
     Indication: PULMONARY ARTERIAL HYPERTENSION
     Dosage: 32.66 NG/KG, PER MIN
     Route: 042

REACTIONS (14)
  - Haemoglobin decreased [Unknown]
  - Asthenia [Unknown]
  - Anaemia [Unknown]
  - Hypoalbuminaemia [Unknown]
  - Hospitalisation [Unknown]
  - Colon neoplasm [Unknown]
  - Device dislocation [Unknown]
  - Blood potassium decreased [Unknown]
  - Death [Fatal]
  - Haemorrhage [Recovered/Resolved]
  - Oedema peripheral [Unknown]
  - Hospice care [Unknown]
  - Upper gastrointestinal haemorrhage [Unknown]
  - Gastritis [Unknown]

NARRATIVE: CASE EVENT DATE: 20200209
